FAERS Safety Report 25220558 (Version 2)
Quarter: 2025Q2

REPORT INFORMATION
  Report Type: Spontaneous
  Country: JP (occurrence: JP)
  Receive Date: 20250421
  Receipt Date: 20250501
  Transmission Date: 20250716
  Serious: Yes (Other)
  Sender: ROCHE
  Company Number: JP-ROCHE-10000263846

PATIENT
  Age: 55 Year
  Sex: Male

DRUGS (1)
  1. RITUXIMAB [Suspect]
     Active Substance: RITUXIMAB
     Indication: Mantle cell lymphoma
     Route: 042

REACTIONS (3)
  - COVID-19 pneumonia [Recovered/Resolved]
  - Respiratory failure [Recovered/Resolved]
  - Post-acute COVID-19 syndrome [Recovered/Resolved]
